FAERS Safety Report 16636523 (Version 1)
Quarter: 2019Q3

REPORT INFORMATION
  Report Type: Spontaneous
  Country: BR (occurrence: BR)
  Receive Date: 20190726
  Receipt Date: 20190726
  Transmission Date: 20191004
  Serious: Yes (Other)
  Sender: FDA-Public Use
  Company Number: BR-ALEXION PHARMACEUTICALS INC.-A201711048

PATIENT
  Age: 47 Year
  Sex: Female
  Weight: 63 kg

DRUGS (4)
  1. BENZETACIL                         /00000904/ [Concomitant]
     Active Substance: PENICILLIN G BENZATHINE
     Indication: PROPHYLAXIS
     Dosage: 1 UNK, QMONTH
     Route: 065
     Dates: start: 2018
  2. OMEPRAZOLE. [Concomitant]
     Active Substance: OMEPRAZOLE
     Indication: GASTRITIS
     Dosage: 1 CAPSULE AT FASTING
     Route: 065
     Dates: end: 201906
  3. SOLIRIS [Suspect]
     Active Substance: ECULIZUMAB
     Indication: PAROXYSMAL NOCTURNAL HAEMOGLOBINURIA
     Dosage: 600 MG, QW
     Route: 042
     Dates: start: 20111223, end: 20120116
  4. SOLIRIS [Suspect]
     Active Substance: ECULIZUMAB
     Dosage: 900 MG, Q2W
     Route: 042
     Dates: start: 20120124

REACTIONS (10)
  - Haemolysis [Recovered/Resolved]
  - Pain [Unknown]
  - Depressed mood [Unknown]
  - Back pain [Recovered/Resolved]
  - Malaise [Recovered/Resolved]
  - Immunodeficiency [Recovered/Resolved]
  - Headache [Recovered/Resolved]
  - Abdominal pain [Recovered/Resolved]
  - Asthenia [Unknown]
  - Influenza [Recovered/Resolved]

NARRATIVE: CASE EVENT DATE: 201709
